FAERS Safety Report 8862457 (Version 1)
Quarter: 2012Q4

REPORT INFORMATION
  Report Type: 
  Country: CA (occurrence: CA)
  Receive Date: 20121026
  Receipt Date: 20121026
  Transmission Date: 20130627
  Serious: Yes (Death)
  Sender: FDA-Public Use
  Company Number: CA-CELGENEUS-028-21880-12102857

PATIENT
  Sex: Male

DRUGS (2)
  1. REVLIMID [Suspect]
     Indication: PANMYELOSIS
     Dosage: 5 Milligram
     Route: 048
     Dates: start: 20120821
  2. REVLIMID [Suspect]
     Indication: MYELOFIBROSIS

REACTIONS (1)
  - Death [Fatal]
